FAERS Safety Report 8460722 (Version 5)
Quarter: 2017Q1

REPORT INFORMATION
  Report Type: Spontaneous
  Country: AU (occurrence: AU)
  Receive Date: 20120315
  Receipt Date: 20170328
  Transmission Date: 20170429
  Serious: Yes (Other)
  Sender: FDA-Public Use
  Company Number: AU-PFIZER INC-2012064802

PATIENT
  Age: 26 Year
  Sex: Female

DRUGS (5)
  1. CITALOPRAM [Concomitant]
     Active Substance: CITALOPRAM HYDROBROMIDE
     Indication: ADJUSTMENT DISORDER
  2. FLUOXETINE [Concomitant]
     Active Substance: FLUOXETINE HYDROCHLORIDE
     Indication: ADJUSTMENT DISORDER
  3. VENLAFAXINE HCL [Suspect]
     Active Substance: VENLAFAXINE HYDROCHLORIDE
     Dosage: 300 MG/DAY
  4. VENLAFAXINE HCL [Suspect]
     Active Substance: VENLAFAXINE HYDROCHLORIDE
     Indication: ADJUSTMENT DISORDER
     Dosage: 37.5 MG/DAY
  5. SERTRALINE [Concomitant]
     Active Substance: SERTRALINE HYDROCHLORIDE
     Indication: ADJUSTMENT DISORDER

REACTIONS (9)
  - Homicide [Recovered/Resolved]
  - Suicidal behaviour [Recovered/Resolved]
  - Mental disorder [Recovered/Resolved]
  - Akathisia [Recovered/Resolved]
  - Fatigue [Unknown]
  - Aggression [Recovered/Resolved]
  - Akinesia [Unknown]
  - Drug level above therapeutic [Recovered/Resolved]
  - Suicidal ideation [Recovered/Resolved]
